FAERS Safety Report 4271387-8 (Version None)
Quarter: 2004Q1

REPORT INFORMATION
  Report Type: 
  Country: None (occurrence: None)
  Receive Date: 20040114
  Receipt Date: 20040114
  Transmission Date: 20041129
  Serious: No
  Sender: FDA-Public Use
  Company Number: None

PATIENT
  Sex: Male

DRUGS (1)
  1. CLOZAPINE [Suspect]
     Indication: PSYCHOTIC DISORDER
     Dosage: 200 MG QD ORAL
     Route: 048
     Dates: start: 20030912, end: 20040113

REACTIONS (1)
  - SALIVARY HYPERSECRETION [None]
